FAERS Safety Report 25767748 (Version 1)
Quarter: 2025Q3

REPORT INFORMATION
  Report Type: Report from Study
  Country: US (occurrence: US)
  Receive Date: 20250905
  Receipt Date: 20250905
  Transmission Date: 20251020
  Serious: No
  Sender: ACADIA PHARMACEUTICALS
  Company Number: US-ACADIA PHARMACEUTICALS INC.-ACA-2025-PIM-009870

PATIENT
  Age: 69 Year
  Sex: Female

DRUGS (14)
  1. NUPLAZID [Suspect]
     Active Substance: PIMAVANSERIN TARTRATE
     Indication: Parkinson^s disease psychosis
     Dosage: 34 MILLIGRAM, QD
     Route: 048
     Dates: start: 20240120, end: 20250902
  2. PROPRANOLOL [Concomitant]
     Active Substance: PROPRANOLOL HYDROCHLORIDE
  3. LORAZEPAM [Concomitant]
     Active Substance: LORAZEPAM
  4. GABAPENTIN [Concomitant]
     Active Substance: GABAPENTIN
  5. TETRABENAZINE [Concomitant]
     Active Substance: TETRABENAZINE
  6. DOXEPIN [Concomitant]
     Active Substance: DOXEPIN
  7. ENTRESTO [Concomitant]
     Active Substance: SACUBITRIL\VALSARTAN
  8. CARVEDILOL [Concomitant]
     Active Substance: CARVEDILOL
  9. ISOSORBIDE MONONITRATE [Concomitant]
     Active Substance: ISOSORBIDE MONONITRATE
  10. ROSUVASTATIN [Concomitant]
     Active Substance: ROSUVASTATIN
  11. LINZESS [Concomitant]
     Active Substance: LINACLOTIDE
  12. ELIQUIS [Concomitant]
     Active Substance: APIXABAN
  13. HALDOL [Concomitant]
     Active Substance: HALOPERIDOL
  14. OZEMPIC [Concomitant]
     Active Substance: SEMAGLUTIDE

REACTIONS (1)
  - Drug ineffective [Unknown]

NARRATIVE: CASE EVENT DATE: 20240120
